FAERS Safety Report 15575317 (Version 1)
Quarter: 2018Q4

REPORT INFORMATION
  Report Type: Spontaneous
  Country: US (occurrence: US)
  Receive Date: 20181101
  Receipt Date: 20181101
  Transmission Date: 20190205
  Serious: Yes (Other)
  Sender: FDA-Public Use
  Company Number: None

PATIENT
  Sex: Female

DRUGS (6)
  1. IBRANCE [Suspect]
     Active Substance: PALBOCICLIB
     Indication: PRODUCT USED FOR UNKNOWN INDICATION
     Route: 048
  2. AMLODIPINE TAB 10MG [Concomitant]
  3. CITALOPRAM TAB 10MG [Concomitant]
  4. AFINITOR 2.5MG TAB [Concomitant]
     Dates: start: 20181019
  5. LETROZOLE 2.5MG TAB [Concomitant]
  6. HYDROCO/APAP TAB 7.5-325 [Concomitant]

REACTIONS (2)
  - Neoplasm [None]
  - Drug ineffective [None]
